FAERS Safety Report 8234694-X (Version None)
Quarter: 2012Q1

REPORT INFORMATION
  Report Type: 
  Country: None (occurrence: None)
  Receive Date: 20120326
  Receipt Date: 20120320
  Transmission Date: 20120608
  Serious: No
  Sender: FDA-Public Use
  Company Number: US-PFIZER INC-2012072805

PATIENT
  Sex: Female

DRUGS (2)
  1. NEURONTIN [Suspect]
     Indication: NEUROPATHY PERIPHERAL
     Dosage: 300 MG, 4X/DAY
     Route: 048
  2. NEURONTIN [Suspect]
     Dosage: UNK
     Route: 048

REACTIONS (3)
  - HYPERSOMNIA [None]
  - NAUSEA [None]
  - HEART RATE INCREASED [None]
